FAERS Safety Report 12402424 (Version 2)
Quarter: 2016Q2

REPORT INFORMATION
  Report Type: Spontaneous
  Country: US (occurrence: US)
  Receive Date: 20160525
  Receipt Date: 20160527
  Transmission Date: 20160815
  Serious: No
  Sender: FDA-Public Use
  Company Number: US-SA-2016SA038673

PATIENT
  Age: 66 Year
  Sex: Male

DRUGS (2)
  1. LANTUS SOLOSTAR [Suspect]
     Active Substance: INSULIN GLARGINE
     Indication: TYPE 2 DIABETES MELLITUS
     Dosage: DAILY DOSE: 35-40 UNITS
     Route: 065
     Dates: start: 201510
  2. SOLOSTAR [Concomitant]
     Active Substance: DEVICE
     Dates: start: 201510

REACTIONS (2)
  - Visual impairment [Unknown]
  - Hypoacusis [Unknown]
